FAERS Safety Report 6768818-8 (Version None)
Quarter: 2010Q2

REPORT INFORMATION
  Report Type: 
  Country: None (occurrence: None)
  Receive Date: 20100611
  Receipt Date: 20100528
  Transmission Date: 20101027
  Serious: Yes (Hospitalization)
  Sender: FDA-Public Use
  Company Number: 1-22807201

PATIENT
  Age: 67 Year
  Sex: Female
  Weight: 95.2554 kg

DRUGS (21)
  1. FENTANYL PATCH 100 MCG/HR [Suspect]
     Indication: ARTHRALGIA
     Dosage: 100 MCG/HR, Q 72 HRS., TRANSDERMAL
     Route: 062
     Dates: start: 20090401
  2. FENTANYL PATCH 100 MCG/HR [Suspect]
     Indication: ARTHRITIS
     Dosage: 100 MCG/HR, Q 72 HRS., TRANSDERMAL
     Route: 062
     Dates: start: 20090401
  3. PHENERGAN [Concomitant]
  4. COREG [Concomitant]
  5. IMDUR [Concomitant]
  6. ASPIRIN [Concomitant]
  7. PERCOCET [Concomitant]
  8. KLONOPIN [Concomitant]
  9. TEGRETOL [Concomitant]
  10. ZOLOFT [Concomitant]
  11. WELLBUTRIN [Concomitant]
  12. MAGNESIUM OXIDE [Concomitant]
  13. LASIX [Concomitant]
  14. COLACE [Concomitant]
  15. ZOFRAN [Concomitant]
  16. PRILOSEC [Concomitant]
  17. HUMULIN 70/30 [Concomitant]
  18. CLOTRIMAZOLE [Concomitant]
  19. VESICARE [Concomitant]
  20. MULTI-VITAMIN [Concomitant]
  21. IRON [Concomitant]

REACTIONS (23)
  - ABASIA [None]
  - ABDOMINAL DISCOMFORT [None]
  - ASTHENIA [None]
  - BLOOD CREATININE INCREASED [None]
  - BLOOD UREA INCREASED [None]
  - BLOOD URINE PRESENT [None]
  - CARDIAC FAILURE [None]
  - CARDIAC MURMUR [None]
  - CHEST PAIN [None]
  - DRUG INEFFECTIVE [None]
  - DRUG WITHDRAWAL SYNDROME [None]
  - EATING DISORDER [None]
  - ELECTROCARDIOGRAM ST-T SEGMENT DEPRESSION [None]
  - HEADACHE [None]
  - LUNG NEOPLASM [None]
  - MUSCLE ATROPHY [None]
  - MUSCULAR WEAKNESS [None]
  - NAUSEA [None]
  - PAIN [None]
  - PRODUCT QUALITY ISSUE [None]
  - PULSE ABNORMAL [None]
  - SENSORY DISTURBANCE [None]
  - VOMITING [None]
